FAERS Safety Report 12919127 (Version 2)
Quarter: 2017Q4

REPORT INFORMATION
  Report Type: Spontaneous
  Country: CA (occurrence: CA)
  Receive Date: 20161108
  Receipt Date: 20171006
  Transmission Date: 20180320
  Serious: Yes (Congenital Anomaly, Other)
  Sender: FDA-Public Use
  Company Number: CA-APOTEX-2016AP014180

PATIENT
  Age: 0 Day
  Sex: Female

DRUGS (1)
  1. PAXIL [Suspect]
     Active Substance: PAROXETINE HYDROCHLORIDE
     Indication: ANXIETY
     Dosage: UNK
     Route: 064

REACTIONS (5)
  - Ventricular septal defect [Not Recovered/Not Resolved]
  - Cardiac disorder [Not Recovered/Not Resolved]
  - Foetal exposure during pregnancy [Not Recovered/Not Resolved]
  - Infection [Not Recovered/Not Resolved]
  - Developmental delay [Not Recovered/Not Resolved]

NARRATIVE: CASE EVENT DATE: 20050914
